FAERS Safety Report 18882179 (Version 1)
Quarter: 2021Q1

REPORT INFORMATION
  Report Type: Spontaneous
  Country: US (occurrence: US)
  Receive Date: 20210211
  Receipt Date: 20210211
  Transmission Date: 20210420
  Serious: No
  Sender: FDA-Public Use
  Company Number: US-VERICEL-US-VCEL-20-003059

PATIENT
  Age: 31 Year
  Sex: Female

DRUGS (1)
  1. MACI [Suspect]
     Active Substance: AUTOLOGOUS CULTURED CHONDROCYTES\SUS SCROFA COLLAGEN
     Indication: CARTILAGE INJURY
     Dosage: 1 DOSAGE FORM, SINGLE
     Route: 050
     Dates: start: 20190723

REACTIONS (3)
  - Treatment failure [Unknown]
  - Graft delamination [Unknown]
  - Arthroscopy [Unknown]

NARRATIVE: CASE EVENT DATE: 20200910
